FAERS Safety Report 8519639 (Version 3)
Quarter: 2013Q1

REPORT INFORMATION
  Report Type: Spontaneous
  Country: US (occurrence: US)
  Receive Date: 20120418
  Receipt Date: 20130327
  Transmission Date: 20140127
  Serious: No
  Sender: FDA-Public Use
  Company Number: US-ASTRAZENECA-2012SE14355

PATIENT
  Age: 59 Year
  Sex: Female

DRUGS (3)
  1. NEXIUM [Suspect]
     Indication: GASTROOESOPHAGEAL REFLUX DISEASE
     Route: 048
  2. OMEPRAZOLE [Suspect]
     Route: 048
  3. PROTONIX [Suspect]
     Route: 065

REACTIONS (13)
  - Dysphagia [Unknown]
  - Pain [Unknown]
  - Gastrooesophageal reflux disease [Unknown]
  - Hyperchlorhydria [Unknown]
  - Panic attack [Unknown]
  - Stress [Unknown]
  - Condition aggravated [Unknown]
  - Malaise [Unknown]
  - Eructation [Unknown]
  - Dry mouth [Unknown]
  - Inappropriate schedule of drug administration [Unknown]
  - Intentional drug misuse [Unknown]
  - Drug ineffective [Unknown]
